FAERS Safety Report 9346768 (Version 1)
Quarter: 2013Q2

REPORT INFORMATION
  Report Type: Spontaneous
  Country: US (occurrence: US)
  Receive Date: 20130613
  Receipt Date: 20130613
  Transmission Date: 20140414
  Serious: No
  Sender: FDA-Public Use
  Company Number: US-MYLANLABS-2013S1007104

PATIENT
  Age: 75 Year
  Sex: Female
  Weight: 77.11 kg

DRUGS (5)
  1. METOPROLOL TARTRATE TABLETS, USP [Suspect]
     Indication: BLOOD PRESSURE
     Route: 048
     Dates: start: 20130217
  2. CLOPIDOGREL TABLETS USP [Suspect]
     Route: 048
     Dates: start: 20130217
  3. WARFARIN TABLETS (BARR) [Suspect]
     Route: 048
     Dates: start: 20130217
  4. LISINOPRIL TABLETS [Suspect]
     Indication: BLOOD PRESSURE
     Route: 048
     Dates: start: 20130217
  5. PRAVASTATIN [Suspect]
     Indication: BLOOD CHOLESTEROL INCREASED
     Route: 048
     Dates: start: 20130217

REACTIONS (1)
  - Ageusia [Not Recovered/Not Resolved]
